FAERS Safety Report 4521980-X (Version None)
Quarter: 2004Q4

REPORT INFORMATION
  Report Type: 
  Country: None (occurrence: None)
  Receive Date: 20041207
  Receipt Date: 20041207
  Transmission Date: 20050328
  Serious: Yes (Other)
  Sender: FDA-Public Use
  Company Number: None

PATIENT
  Sex: Female
  Weight: 88.4514 kg

DRUGS (1)
  1. EFFEXOR XR [Suspect]
     Indication: DEPRESSION
     Dosage: 1 CAPSULE  EVERY DAY ORAL
     Route: 048
     Dates: start: 20040508, end: 20041116

REACTIONS (5)
  - ABASIA [None]
  - ARTHRALGIA [None]
  - BEDRIDDEN [None]
  - DRUG WITHDRAWAL SYNDROME [None]
  - FEELING ABNORMAL [None]
